FAERS Safety Report 11865876 (Version 3)
Quarter: 2016Q1

REPORT INFORMATION
  Report Type: Spontaneous
  Country: GB (occurrence: GB)
  Receive Date: 20151223
  Receipt Date: 20160107
  Transmission Date: 20160526
  Serious: Yes (Death, Life-Threatening, Hospitalization, Other)
  Sender: FDA-Public Use
  Company Number: GB-ABBVIE-15P-167-1526366-00

PATIENT
  Age: 57 Year
  Sex: Male

DRUGS (2)
  1. VIEKIRAX [Suspect]
     Active Substance: OMBITASVIR\PARITAPREVIR\RITONAVIR
     Indication: HEPATITIS C
     Route: 048
     Dates: start: 201511
  2. EXVIERA [Suspect]
     Active Substance: DASABUVIR
     Indication: HEPATITIS C
     Route: 048
     Dates: start: 201511

REACTIONS (7)
  - Cardiac arrest [Fatal]
  - Tuberculosis [Unknown]
  - Metastatic neoplasm [Unknown]
  - Terminal state [Unknown]
  - Renal failure [Unknown]
  - Hepatic cirrhosis [Unknown]
  - Hepatic failure [Fatal]

NARRATIVE: CASE EVENT DATE: 201512
